FAERS Safety Report 9055224 (Version 3)
Quarter: 2013Q2

REPORT INFORMATION
  Report Type: Report from Study
  Country: DE (occurrence: DE)
  Receive Date: 20130206
  Receipt Date: 20130408
  Transmission Date: 20140414
  Serious: Yes (Hospitalization)
  Sender: FDA-Public Use
  Company Number: DE-AMGEN-DEUCT2013008224

PATIENT
  Age: 59 Year
  Sex: Female

DRUGS (4)
  1. PANITUMUMAB [Suspect]
     Indication: GASTROOESOPHAGEAL CANCER
     Dosage: 9 MG/KG, UNK
     Route: 042
     Dates: start: 20130124
  2. EPIRUBICIN [Concomitant]
     Indication: GASTROOESOPHAGEAL CANCER
     Dosage: 50 MG/M2, UNK
     Route: 042
     Dates: start: 20130124
  3. CISPLATIN [Concomitant]
     Indication: GASTROOESOPHAGEAL CANCER
     Dosage: 60 MG/M2, UNK
     Route: 042
     Dates: start: 20130124
  4. CAPECITABINE [Concomitant]
     Indication: GASTROOESOPHAGEAL CANCER
     Dosage: 1000 MG/M2, UNK
     Route: 048
     Dates: start: 20130124, end: 20130130

REACTIONS (2)
  - Upper gastrointestinal haemorrhage [Recovered/Resolved]
  - Oesophageal candidiasis [Recovered/Resolved]
